FAERS Safety Report 8131770-7 (Version None)
Quarter: 2012Q1

REPORT INFORMATION
  Report Type: 
  Country: None (occurrence: None)
  Receive Date: 20120213
  Receipt Date: 20120203
  Transmission Date: 20120608
  Serious: Yes (Other)
  Sender: FDA-Public Use
  Company Number: US-US-EMD SERONO, INC.-7069653

PATIENT
  Sex: Female
  Weight: 66 kg

DRUGS (7)
  1. XANAX [Concomitant]
  2. OMEPRAZOLE [Concomitant]
  3. PROAIR HFA [Concomitant]
  4. CELEBREX [Concomitant]
  5. SYMBICORT [Concomitant]
  6. REBIF [Suspect]
     Indication: MULTIPLE SCLEROSIS
     Route: 058
     Dates: start: 20100809, end: 20110815
  7. DIGOXIN [Concomitant]

REACTIONS (6)
  - WEIGHT DECREASED [None]
  - HEPATITIS C VIRUS TEST POSITIVE [None]
  - INFLUENZA LIKE ILLNESS [None]
  - PULMONARY HYPERTENSION [None]
  - HEART VALVE INCOMPETENCE [None]
  - INJECTION SITE HAEMATOMA [None]
